FAERS Safety Report 4821961-2 (Version None)
Quarter: 2005Q4

REPORT INFORMATION
  Report Type: 
  Country: None (occurrence: None)
  Receive Date: 20051103
  Receipt Date: 20521025
  Transmission Date: 20060501
  Serious: Yes (Other)
  Sender: FDA-Public Use
  Company Number: 2005147118

PATIENT
  Sex: Male

DRUGS (3)
  1. NORVASC [Suspect]
     Indication: HYPERTENSION
     Dosage: 5 MG (5 MG, 1 IN 1 D), ORAL
     Route: 048
  2. HYDROXYCHLOROQUINE SULFATE           (HYDROXYCHLOROQUINE SULFATE) [Concomitant]
  3. OTHER DERMATOLOGICAL PREPARATIONS [Concomitant]

REACTIONS (3)
  - ERECTILE DYSFUNCTION [None]
  - RASH [None]
  - THYROID GLAND CANCER [None]
